FAERS Safety Report 10667107 (Version 1)
Quarter: 2014Q4

REPORT INFORMATION
  Report Type: Spontaneous
  Country: US (occurrence: None)
  Receive Date: 20141219
  Receipt Date: 20141219
  Transmission Date: 20150529
  Serious: Yes (Disabling)
  Sender: FDA-Public Use
  Company Number: None

PATIENT
  Age: 54 Year
  Sex: Female
  Weight: 81.65 kg

DRUGS (1)
  1. RECLAST [Suspect]
     Active Substance: ZOLEDRONIC ACID

REACTIONS (5)
  - Joint swelling [None]
  - Infusion site pain [None]
  - Joint range of motion decreased [None]
  - Pyrexia [None]
  - Movement disorder [None]

NARRATIVE: CASE EVENT DATE: 20140819
